FAERS Safety Report 8004476-2 (Version None)
Quarter: 2011Q4

REPORT INFORMATION
  Report Type: 
  Country: None (occurrence: None)
  Receive Date: 20111221
  Receipt Date: 20111221
  Transmission Date: 20120403
  Serious: Yes (Hospitalization)
  Sender: FDA-Public Use
  Company Number: None

PATIENT
  Sex: Female

DRUGS (1)
  1. SHEER COVER DAILY PLUS [Suspect]
     Indication: VITAMIN SUPPLEMENTATION
     Dosage: DAILY, ORALLY
     Route: 048

REACTIONS (1)
  - HAEMORRHAGE [None]
